FAERS Safety Report 8256796-4 (Version None)
Quarter: 2012Q2

REPORT INFORMATION
  Report Type: 
  Country: None (occurrence: None)
  Receive Date: 20120403
  Receipt Date: 20120326
  Transmission Date: 20120825
  Serious: Yes (Hospitalization, Other)
  Sender: FDA-Public Use
  Company Number: PHHO2009JP15061

PATIENT
  Sex: Male
  Weight: 41 kg

DRUGS (22)
  1. CERTICAN [Suspect]
     Dosage: 1 MG, UNK
     Route: 048
     Dates: start: 20090701, end: 20091203
  2. CERTICAN [Suspect]
     Dosage: 1 MG, UNK
     Route: 048
     Dates: start: 20100426
  3. SPIRIVA [Concomitant]
     Indication: EMPHYSEMA
     Dosage: UNK
     Dates: start: 20080430
  4. CERTICAN [Suspect]
     Indication: RENAL TRANSPLANT
     Dosage: 1 MG, UNK
     Route: 048
     Dates: start: 20080708
  5. NEORAL [Suspect]
     Indication: RENAL TRANSPLANT
     Dosage: 40 MG, UNK
     Route: 048
     Dates: start: 20090924
  6. PRAVASTATIN SODIUM [Concomitant]
     Indication: HYPERCHOLESTEROLAEMIA
     Dosage: 5 MG, UNK
     Route: 048
     Dates: start: 20081211
  7. URINORM [Concomitant]
     Indication: HYPERURICAEMIA
     Dosage: 50 MG, UNK
     Route: 048
     Dates: start: 20080918
  8. NEORAL [Suspect]
     Dosage: 60 MG, UNK
     Route: 048
     Dates: start: 20110303
  9. MEDROL [Suspect]
     Indication: RENAL TRANSPLANT
     Dosage: 4 MG, UNK
     Route: 048
     Dates: start: 20081024
  10. NORVASC [Concomitant]
     Indication: RENAL HYPERTENSION
     Dosage: 13.5 MG, UNK
     Route: 048
     Dates: start: 20090108
  11. CANDESARTAN CILEXETIL [Concomitant]
     Indication: RENAL HYPERTENSION
     Dosage: 8 MG, UNK
     Route: 048
     Dates: start: 20080813
  12. ACTONEL [Concomitant]
     Indication: OSTEOPOROSIS
     Dosage: 17.5 MG, UNK
     Route: 048
     Dates: start: 20100506
  13. NEUER [Concomitant]
     Indication: GASTRITIS PROPHYLAXIS
     Dosage: 600 MG, UNK
     Route: 048
     Dates: start: 20080709
  14. SIMULECT [Concomitant]
     Indication: RENAL TRANSPLANT
     Dosage: 20 MG, UNK
  15. LANSOPRAZOLE [Concomitant]
     Indication: GASTRITIS PROPHYLAXIS
     Dosage: 15 MG, UNK
     Route: 048
     Dates: start: 20081226
  16. OLMESARTAN MEDOXOMIL [Concomitant]
     Indication: RENAL HYPERTENSION
     Dosage: 20 MG, UNK
     Route: 048
     Dates: start: 20100819
  17. ISODINE [Concomitant]
     Indication: INFECTION PROPHYLAXIS
     Dosage: UNK
     Dates: start: 20080630
  18. CERTICAN [Suspect]
     Dosage: 1 MG, UNK
     Route: 048
     Dates: start: 20091210, end: 20100420
  19. DOXAZOSIN MESYLATE [Concomitant]
     Indication: RENAL HYPERTENSION
     Dosage: 2 MG, UNK
     Route: 048
     Dates: start: 20090123
  20. BISOPROLOL FUMARATE [Concomitant]
     Indication: RENAL HYPERTENSION
     Dosage: 5 MG, UNK
     Route: 048
     Dates: start: 20080918
  21. ADALAT CC [Concomitant]
     Indication: RENAL HYPERTENSION
     Dosage: 20 MG, UNK
     Route: 048
     Dates: start: 20100916
  22. LASIX [Concomitant]
     Indication: RENAL HYPERTENSION
     Dosage: 20 MG, UNK
     Route: 048
     Dates: start: 20110512

REACTIONS (5)
  - PNEUMONIA [None]
  - NEPHROPATHY [None]
  - PNEUMOTHORAX [None]
  - PYREXIA [None]
  - PNEUMONIA BACTERIAL [None]
